FAERS Safety Report 16939770 (Version 1)
Quarter: 2019Q4

REPORT INFORMATION
  Report Type: Spontaneous
  Country: US (occurrence: US)
  Receive Date: 20190828
  Receipt Date: 20190828
  Transmission Date: 20200122
  Serious: Yes (Hospitalization)
  Sender: FDA-Public Use
  Company Number: None

PATIENT
  Age: 63 Year
  Sex: Male

DRUGS (1)
  1. LITHIUM. [Suspect]
     Active Substance: LITHIUM
     Indication: SCHIZOPHRENIA
     Route: 048
     Dates: start: 20190718, end: 20190729

REACTIONS (3)
  - Toxicity to various agents [None]
  - Blood creatinine increased [None]
  - Polyuria [None]

NARRATIVE: CASE EVENT DATE: 20190729
